FAERS Safety Report 22625665 (Version 1)
Quarter: 2023Q2

REPORT INFORMATION
  Report Type: Spontaneous
  Country: US (occurrence: None)
  Receive Date: 20230617
  Receipt Date: 20230617
  Transmission Date: 20230722
  Serious: Yes (Hospitalization)
  Sender: FDA-Public Use
  Company Number: None

PATIENT
  Sex: Male

DRUGS (1)
  1. BALVERSA [Suspect]
     Active Substance: ERDAFITINIB
     Indication: Bladder cancer
     Dosage: 8MG TWICE DAILY ORAL?
     Route: 048
     Dates: start: 20230526

REACTIONS (4)
  - Pain in extremity [None]
  - Bladder cancer [None]
  - Malignant neoplasm progression [None]
  - Metastases to muscle [None]
